FAERS Safety Report 16083308 (Version 1)
Quarter: 2019Q1

REPORT INFORMATION
  Report Type: Spontaneous
  Country: US (occurrence: US)
  Receive Date: 20190318
  Receipt Date: 20190318
  Transmission Date: 20190418
  Serious: No
  Sender: FDA-Public Use
  Company Number: US-009507513-1903USA005922

PATIENT
  Age: 41 Year
  Sex: Female

DRUGS (4)
  1. METANX [Concomitant]
     Active Substance: LEVOMEFOLATE CALCIUM\METHYLCOBALAMIN\PYRIDOXAL PHOSPHATE ANHYDROUS
  2. FOLLISTIM [Concomitant]
     Active Substance: FOLLITROPIN
  3. FOLLISTIM [Suspect]
     Active Substance: FOLLITROPIN
     Indication: INFERTILITY
     Dosage: 300 INTERNATIONAL UNIT, QHS
     Route: 058
  4. GANIRELIX ACETATE. [Suspect]
     Active Substance: GANIRELIX ACETATE
     Indication: INFERTILITY
     Dosage: 250 MICROGRAM, QHS
     Route: 058

REACTIONS (2)
  - Muscle spasms [Not Recovered/Not Resolved]
  - Abdominal distension [Not Recovered/Not Resolved]
